FAERS Safety Report 4824809-5 (Version None)
Quarter: 2005Q4

REPORT INFORMATION
  Report Type: 
  Country: None (occurrence: None)
  Receive Date: 20051110
  Receipt Date: 20051024
  Transmission Date: 20060501
  Serious: Yes (Hospitalization)
  Sender: FDA-Public Use
  Company Number: BR-SANOFI-SYNTHELABO-A01200507337

PATIENT
  Sex: Male

DRUGS (5)
  1. PLAVIX [Suspect]
     Indication: CORONARY ANGIOPLASTY
     Dosage: 4 UNIT
     Route: 048
     Dates: start: 20051022, end: 20051022
  2. AAS [Concomitant]
     Indication: CORONARY ARTERY DISEASE
     Dosage: 200 MG
     Route: 048
     Dates: start: 19930101
  3. CARDIZEM [Concomitant]
     Indication: CORONARY ARTERY DISEASE
     Dosage: 100 MG
     Route: 048
     Dates: start: 19930101, end: 20051022
  4. ZOCOR [Concomitant]
     Indication: LIPIDS ABNORMAL
     Dosage: 40 MG
     Route: 048
     Dates: start: 20051020
  5. CAPTOPRIL [Concomitant]
     Indication: MYOCARDIAL INFARCTION
     Dosage: 75 MG
     Route: 048
     Dates: start: 20051020

REACTIONS (3)
  - BRONCHOSPASM [None]
  - MUSCLE SPASMS [None]
  - TREMOR [None]
